FAERS Safety Report 8190074-7 (Version None)
Quarter: 2012Q1

REPORT INFORMATION
  Report Type: 
  Country: None (occurrence: None)
  Receive Date: 20120307
  Receipt Date: 20120228
  Transmission Date: 20120608
  Serious: No
  Sender: FDA-Public Use
  Company Number: US-BAYER-2012-021116

PATIENT
  Age: 4 Year
  Sex: Male
  Weight: 16 kg

DRUGS (3)
  1. IRON SUPPLEMENT [Concomitant]
  2. NAPROXEN (ALEVE) [Suspect]
     Dosage: 1 DF, QD
     Route: 048
     Dates: start: 20120228
  3. SINGULAIR [Concomitant]

REACTIONS (1)
  - NO ADVERSE EVENT [None]
